FAERS Safety Report 8400272-2 (Version None)
Quarter: 2012Q2

REPORT INFORMATION
  Report Type: 
  Country: None (occurrence: None)
  Receive Date: 20120531
  Receipt Date: 20120516
  Transmission Date: 20120825
  Serious: No
  Sender: FDA-Public Use
  Company Number: US-ASTRAZENECA-2012SE31835

PATIENT
  Age: 88 Year
  Sex: Male

DRUGS (3)
  1. ATACAND [Concomitant]
  2. CRESTOR [Suspect]
     Route: 048
  3. LIPITOR [Concomitant]

REACTIONS (2)
  - PAIN IN EXTREMITY [None]
  - ABASIA [None]
